FAERS Safety Report 25934956 (Version 1)
Quarter: 2025Q4

REPORT INFORMATION
  Report Type: Report from Study
  Country: US (occurrence: US)
  Receive Date: 20251017
  Receipt Date: 20251017
  Transmission Date: 20260118
  Serious: Yes (Other)
  Sender: ABBVIE
  Company Number: US-ABBVIE-6506644

PATIENT
  Age: 67 Year
  Sex: Female

DRUGS (1)
  1. RINVOQ [Suspect]
     Active Substance: UPADACITINIB
     Indication: Rheumatoid arthritis
     Route: 048

REACTIONS (4)
  - Sciatica [Recovering/Resolving]
  - Injection site pain [Unknown]
  - Tooth extraction [Recovering/Resolving]
  - Dental bone graft [Recovering/Resolving]

NARRATIVE: CASE EVENT DATE: 20250501
